FAERS Safety Report 14140271 (Version 1)
Quarter: 2017Q4

REPORT INFORMATION
  Report Type: Spontaneous
  Country: HR (occurrence: HR)
  Receive Date: 20171030
  Receipt Date: 20171030
  Transmission Date: 20180321
  Serious: Yes (Life-Threatening, Hospitalization, Other)
  Sender: FDA-Public Use
  Company Number: HR-ALEMBIC PHARMACUETICALS LIMITED-2017SCAL000828

PATIENT

DRUGS (2)
  1. LAMOTRIGINE. [Suspect]
     Active Substance: LAMOTRIGINE
     Indication: HEADACHE
     Dosage: UNK
  2. LAMOTRIGINE. [Suspect]
     Active Substance: LAMOTRIGINE
     Indication: ELECTROENCEPHALOGRAM ABNORMAL

REACTIONS (22)
  - Hypoproteinaemia [Unknown]
  - Drug reaction with eosinophilia and systemic symptoms [Recovering/Resolving]
  - Lymphocytosis [Unknown]
  - Haemothorax [Recovering/Resolving]
  - Autoimmune disorder [Unknown]
  - Neuropathy peripheral [Unknown]
  - Pupils unequal [Unknown]
  - Myositis [Unknown]
  - Lymphadenopathy [Unknown]
  - Face oedema [Recovering/Resolving]
  - Leukocytosis [Unknown]
  - Transaminases increased [Unknown]
  - Hepatomegaly [Unknown]
  - Acute respiratory failure [Recovering/Resolving]
  - Staphylococcal sepsis [Recovering/Resolving]
  - Blood creatine phosphokinase increased [Recovering/Resolving]
  - Eosinophilia [Unknown]
  - Complement factor C3 decreased [Unknown]
  - Pyrexia [Recovering/Resolving]
  - Antinuclear antibody positive [Recovering/Resolving]
  - Rash generalised [Recovering/Resolving]
  - Muscular weakness [Recovering/Resolving]
